FAERS Safety Report 9594035 (Version 2)
Quarter: 2014Q1

REPORT INFORMATION
  Report Type: Spontaneous
  Country: US (occurrence: None)
  Receive Date: 20131002
  Receipt Date: 20140128
  Transmission Date: 20141002
  Serious: Yes (Congenital Anomaly, Other)
  Sender: FDA-Public Use
  Company Number: AUR-APL-2013-07962

PATIENT
  Sex: Male
  Weight: 2.1 kg

DRUGS (5)
  1. RIBAVIRIN [Suspect]
     Indication: HEPATITIS C
     Route: 064
     Dates: start: 20111020, end: 20111115
  2. REYATAZ (ATAZANAVIR SULFATE) [Concomitant]
  3. NORVIR (RITONAVIR) [Concomitant]
  4. TRUVADA (TRUVADA) [Concomitant]
  5. PROVENTIL HFA (SALBUTAMOL) [Concomitant]

REACTIONS (4)
  - Low birth weight baby [None]
  - Maternal drugs affecting foetus [None]
  - Deafness congenital [None]
  - Drug interaction [None]
